FAERS Safety Report 10741730 (Version 1)
Quarter: 2015Q1

REPORT INFORMATION
  Report Type: Spontaneous
  Country: US (occurrence: None)
  Receive Date: 20150123
  Receipt Date: 20150123
  Transmission Date: 20150721
  Serious: Yes (Death)
  Sender: FDA-Public Use
  Company Number: 2015COR00007

PATIENT
  Age: 61 Year
  Sex: Male

DRUGS (1)
  1. METFORMIN [Suspect]
     Active Substance: METFORMIN HYDROCHLORIDE

REACTIONS (8)
  - Coma [None]
  - Hypoglycaemia [None]
  - Pancytopenia [None]
  - Acute lung injury [None]
  - Respiratory depression [None]
  - Metabolic acidosis [None]
  - Coagulopathy [None]
  - Hypotension [None]
